FAERS Safety Report 7493420-2 (Version None)
Quarter: 2011Q2

REPORT INFORMATION
  Report Type: 
  Country: None (occurrence: None)
  Receive Date: 20110520
  Receipt Date: 20110426
  Transmission Date: 20111010
  Serious: Yes (Other)
  Sender: FDA-Public Use
  Company Number: US-BAYER-201020674NA

PATIENT
  Age: 25 Year
  Sex: Female
  Weight: 102.49 kg

DRUGS (10)
  1. BENZACLIN [Concomitant]
     Indication: ACNE
     Dosage: 50 MG, UNK
     Route: 061
     Dates: start: 20060426, end: 20060601
  2. LORTAB [Concomitant]
  3. IBUPROFEN [Concomitant]
  4. YASMIN [Suspect]
     Indication: CONTRACEPTION
     Dosage: UNK
     Route: 048
     Dates: start: 20060426, end: 20060704
  5. YASMIN [Suspect]
  6. YASMIN [Suspect]
     Indication: MIGRAINE
  7. MINOCYCLINE HCL [Concomitant]
     Indication: ACNE
     Dosage: 100 MG, UNK
     Route: 048
     Dates: start: 20060426, end: 20060601
  8. YASMIN [Suspect]
     Indication: PREMENSTRUAL SYNDROME
  9. CYCLOBENZAPRINE [Concomitant]
  10. NAPROXEN (ALEVE) [Concomitant]

REACTIONS (7)
  - PAIN [None]
  - VOMITING [None]
  - TENDERNESS [None]
  - PLEURAL EFFUSION [None]
  - PULMONARY THROMBOSIS [None]
  - NAUSEA [None]
  - CHEST PAIN [None]
